FAERS Safety Report 19054168 (Version 1)
Quarter: 2021Q1

REPORT INFORMATION
  Report Type: Spontaneous
  Country: US (occurrence: US)
  Receive Date: 20210325
  Receipt Date: 20210325
  Transmission Date: 20210420
  Serious: Yes (Other)
  Sender: FDA-Public Use
  Company Number: US-SA-2021SA099612

PATIENT
  Sex: Female

DRUGS (1)
  1. ICY HOT WITH LIDOCAINE PAIN RELIEVING [Suspect]
     Active Substance: LIDOCAINE\MENTHOL
     Indication: BACK PAIN
     Dosage: UNK
     Dates: start: 2019

REACTIONS (2)
  - Scar [Unknown]
  - Burns third degree [Unknown]

NARRATIVE: CASE EVENT DATE: 2019
